FAERS Safety Report 7668591-5 (Version None)
Quarter: 2011Q3

REPORT INFORMATION
  Report Type: 
  Country: None (occurrence: None)
  Receive Date: 20110808
  Receipt Date: 20110808
  Transmission Date: 20111222
  Serious: Yes (Other)
  Sender: FDA-Public Use
  Company Number: None

PATIENT
  Age: 52 Year
  Sex: Male
  Weight: 101.6 kg

DRUGS (1)
  1. CEENU [Suspect]
     Indication: GLIOBLASTOMA
     Dosage: 240MG
     Route: 048
     Dates: start: 20110722, end: 20110722

REACTIONS (1)
  - CONVULSION [None]
